FAERS Safety Report 9558897 (Version 2)
Quarter: 2013Q3

REPORT INFORMATION
  Report Type: Spontaneous
  Country: US (occurrence: US)
  Receive Date: 20130927
  Receipt Date: 20130927
  Transmission Date: 20140515
  Serious: Yes (Other)
  Sender: FDA-Public Use
  Company Number: PHHY2013US101043

PATIENT
  Age: 57 Year
  Sex: Female

DRUGS (6)
  1. TACROLIMUS [Suspect]
     Indication: RENAL TRANSPLANT
     Dosage: 1 MG, BID
  2. PREDNISONE [Suspect]
     Indication: RENAL TRANSPLANT
     Dosage: 7.5 MG, QD
  3. PREDNISONE [Suspect]
     Dosage: 10 MG, DAILY
  4. MYCOPHENOLATE [Suspect]
     Indication: RENAL TRANSPLANT
     Dosage: 500 MG, BID
  5. BASILIXIMAB [Suspect]
     Indication: RENAL TRANSPLANT
     Dosage: 20 MG
     Route: 042
  6. SIROLIMUS [Concomitant]
     Dosage: 1 MG, UNK

REACTIONS (9)
  - Central nervous system lymphoma [Recovering/Resolving]
  - Headache [Recovering/Resolving]
  - Dizziness [Recovering/Resolving]
  - Confusional state [Recovering/Resolving]
  - Ataxia [Recovering/Resolving]
  - Central nervous system necrosis [Recovering/Resolving]
  - White matter lesion [Recovering/Resolving]
  - Normochromic normocytic anaemia [Recovering/Resolving]
  - Epstein-Barr virus infection [Unknown]
